FAERS Safety Report 7140946-7 (Version None)
Quarter: 2010Q4

REPORT INFORMATION
  Report Type: 
  Country: None (occurrence: None)
  Receive Date: 20101122
  Receipt Date: 20101117
  Transmission Date: 20110411
  Serious: Yes (Disabling)
  Sender: FDA-Public Use
  Company Number: 1-20081023

PATIENT
  Age: 19 Year
  Sex: Female

DRUGS (1)
  1. BETASEPT [Suspect]
     Indication: PREOPERATIVE CARE
     Dosage: USED ONE TIME, TOPICAL
     Route: 061
     Dates: start: 20081023

REACTIONS (3)
  - ACCIDENTAL EXPOSURE [None]
  - CORNEAL ABRASION [None]
  - OFF LABEL USE [None]
